FAERS Safety Report 4975025-8 (Version None)
Quarter: 2006Q2

REPORT INFORMATION
  Report Type: 
  Country: None (occurrence: None)
  Receive Date: 20060418
  Receipt Date: 20060406
  Transmission Date: 20061013
  Serious: Yes (Other)
  Sender: FDA-Public Use
  Company Number: US-JNJFOC-20060402015

PATIENT
  Sex: Male
  Weight: 79.38 kg

DRUGS (1)
  1. TOPAMAX [Suspect]
     Route: 048
     Dates: start: 20040101

REACTIONS (1)
  - AUTOIMMUNE HEPATITIS [None]
